FAERS Safety Report 5739183-X (Version None)
Quarter: 2008Q2

REPORT INFORMATION
  Report Type: 
  Country: None (occurrence: None)
  Receive Date: 20080515
  Receipt Date: 20080513
  Transmission Date: 20081010
  Serious: Yes (Hospitalization)
  Sender: FDA-Public Use
  Company Number: US-BRISTOL-MYERS SQUIBB COMPANY-13877154

PATIENT
  Age: 76 Year
  Sex: Male

DRUGS (9)
  1. CISPLATIN [Suspect]
     Indication: GASTROOESOPHAGEAL CANCER
     Route: 041
     Dates: start: 20070112, end: 20070112
  2. TS-1 [Suspect]
     Indication: GASTROOESOPHAGEAL CANCER
     Route: 048
     Dates: start: 20070112, end: 20070201
  3. HYOSCYAMINE [Concomitant]
     Indication: ABDOMINAL PAIN
     Route: 060
     Dates: start: 20070207
  4. LIPITOR [Concomitant]
     Indication: HYPERLIPIDAEMIA
     Route: 048
     Dates: start: 20040901
  5. ADVIL [Concomitant]
     Indication: PAIN
     Route: 048
     Dates: start: 20070201
  6. IMODIUM [Concomitant]
     Indication: DIARRHOEA
     Route: 048
     Dates: start: 20070201
  7. PRILOSEC [Concomitant]
     Indication: DYSPEPSIA
     Route: 048
     Dates: start: 20061101
  8. AZITHROMYCIN [Concomitant]
     Indication: INFECTION PROPHYLAXIS
     Route: 048
     Dates: start: 20070205, end: 20070208
  9. KETOROLAC TROMETHAMINE [Concomitant]
     Indication: BACK PAIN
     Route: 042
     Dates: start: 20070208, end: 20070208

REACTIONS (2)
  - BLOOD CREATININE INCREASED [None]
  - INTESTINAL OBSTRUCTION [None]
